FAERS Safety Report 8207643-8 (Version None)
Quarter: 2012Q1

REPORT INFORMATION
  Report Type: 
  Country: None (occurrence: None)
  Receive Date: 20120314
  Receipt Date: 20120314
  Transmission Date: 20120608
  Serious: Yes (Death)
  Sender: FDA-Public Use
  Company Number: None

PATIENT
  Age: 88 Year
  Sex: Female
  Weight: 77.11 kg

DRUGS (3)
  1. SIMVASTATIN [Concomitant]
     Route: 048
  2. DABIGATRAN [Suspect]
     Indication: ATRIAL FIBRILLATION
     Route: 048
     Dates: start: 20110701, end: 20110929
  3. NEXIUM [Concomitant]
     Route: 048

REACTIONS (4)
  - FALL [None]
  - CEREBRAL HAEMORRHAGE TRAUMATIC [None]
  - DIALYSIS [None]
  - SUBDURAL HAEMATOMA [None]
